FAERS Safety Report 22349839 (Version 2)
Quarter: 2023Q2

REPORT INFORMATION
  Report Type: Spontaneous
  Country: CA (occurrence: CA)
  Receive Date: 20230522
  Receipt Date: 20230525
  Transmission Date: 20230722
  Serious: Yes (Hospitalization)
  Sender: FDA-Public Use
  Company Number: CA-SAMSUNG BIOEPIS-SB-2023-13296

PATIENT
  Age: 9 Year
  Sex: Female

DRUGS (1)
  1. ADALIMUMAB [Suspect]
     Active Substance: ADALIMUMAB
     Indication: Juvenile idiopathic arthritis
     Dosage: DURATION: 5.811 YEARS
     Route: 058

REACTIONS (8)
  - Arthralgia [Recovered/Resolved]
  - Arthritis [Recovered/Resolved]
  - Hospitalisation [Recovered/Resolved]
  - Osteitis [Recovered/Resolved]
  - Pain [Recovered/Resolved]
  - Uveitis [Recovered/Resolved]
  - Drug ineffective [Recovered/Resolved]
  - Product use issue [Unknown]
